FAERS Safety Report 24392321 (Version 1)
Quarter: 2024Q4

REPORT INFORMATION
  Report Type: Spontaneous
  Country: US (occurrence: None)
  Receive Date: 20241002
  Receipt Date: 20241002
  Transmission Date: 20250115
  Serious: Yes (Death, Life-Threatening, Hospitalization, Other)
  Sender: Public
  Company Number: None

PATIENT
  Age: 49 Year
  Sex: Male
  Weight: 73.2 kg

DRUGS (2)
  1. EPCORITAMAB [Suspect]
     Active Substance: EPCORITAMAB
     Dates: start: 20240604, end: 20240618
  2. YESCARTA [Suspect]
     Active Substance: AXICABTAGENE CILOLEUCEL

REACTIONS (9)
  - Cerebral haemorrhage [None]
  - Serum ferritin increased [None]
  - Splenomegaly [None]
  - Metastases to liver [None]
  - Disease progression [None]
  - Haemophagocytic lymphohistiocytosis [None]
  - Subdural haemorrhage [None]
  - Subarachnoid haemorrhage [None]
  - Cytokine release syndrome [None]

NARRATIVE: CASE EVENT DATE: 20240624
